FAERS Safety Report 4265745-5 (Version None)
Quarter: 2004Q1

REPORT INFORMATION
  Report Type: 
  Country: None (occurrence: None)
  Receive Date: 20040107
  Receipt Date: 20031218
  Transmission Date: 20041129
  Serious: Yes (Hospitalization)
  Sender: FDA-Public Use
  Company Number: DE-ROCHE-354373

PATIENT
  Age: 24 Year
  Sex: Male

DRUGS (9)
  1. DACLIZUMAB [Suspect]
     Route: 042
  2. MYCOPHENOLATE MOFETIL [Suspect]
     Route: 048
     Dates: start: 20030920
  3. CYCLOSPORINE [Suspect]
     Route: 048
     Dates: start: 20031023
  4. METHYLPREDNISOLONE [Suspect]
     Route: 048
     Dates: start: 20030914
  5. ATORVASTATIN [Concomitant]
     Route: 048
     Dates: start: 20031009
  6. CALCIUM CARBONATE [Concomitant]
     Route: 048
     Dates: start: 20030908
  7. METOPROLOL [Concomitant]
     Route: 048
     Dates: start: 20031124
  8. LOSARTAN [Concomitant]
     Route: 048
     Dates: start: 20030815
  9. ENALAPRIL [Concomitant]
     Route: 048
     Dates: start: 20031024

REACTIONS (4)
  - BLOOD CREATININE INCREASED [None]
  - HYPERTENSION [None]
  - KIDNEY TRANSPLANT REJECTION [None]
  - RENAL ARTERY STENOSIS [None]
